FAERS Safety Report 6722658-4 (Version None)
Quarter: 2010Q2

REPORT INFORMATION
  Report Type: 
  Country: None (occurrence: None)
  Receive Date: 20100512
  Receipt Date: 20100419
  Transmission Date: 20101027
  Serious: Yes (Death, Hospitalization, Other)
  Sender: FDA-Public Use
  Company Number: PHHY2010FR28981

PATIENT
  Age: 29 Year
  Sex: Female

DRUGS (11)
  1. SIMULECT [Suspect]
     Indication: LIVER TRANSPLANT
     Dosage: 20 MG, ONCE/SINGLE
  2. SIMULECT [Suspect]
     Dosage: 20 MG, ONCE/SINGLE
  3. MYCOPHENOLATE MOFETIL [Suspect]
     Indication: LIVER TRANSPLANT
  4. TACROLIMUS [Suspect]
  5. CORTICOSTEROIDS [Concomitant]
  6. ANTI-THYMOCYTE GLOBULIN RABBIT NOS [Concomitant]
  7. METHYLPREDNISOLONE 4MG TAB [Concomitant]
  8. PIPERACILLIN W/TAZOBACTAM [Concomitant]
  9. GANCICLOVIR [Concomitant]
     Dosage: 5 MG/KG/DAY
     Route: 042
  10. VALGANCICLOVIR HCL [Concomitant]
     Dosage: 900 MG/DAY
     Route: 048
  11. AMPHOTERICIN B [Concomitant]
     Dosage: 1 MG/KG/DAY

REACTIONS (11)
  - ACUTE RESPIRATORY DISTRESS SYNDROME [None]
  - BRONCHOPNEUMONIA [None]
  - CHOLESTASIS [None]
  - CONTINUOUS HAEMODIAFILTRATION [None]
  - CYTOLYTIC HEPATITIS [None]
  - HAEMODYNAMIC INSTABILITY [None]
  - INTRA-ABDOMINAL HAEMORRHAGE [None]
  - MULTI-ORGAN FAILURE [None]
  - RENAL FAILURE ACUTE [None]
  - SEPSIS [None]
  - SEPTIC SHOCK [None]
